FAERS Safety Report 4898583-0 (Version None)
Quarter: 2006Q1

REPORT INFORMATION
  Report Type: 
  Country: None (occurrence: None)
  Receive Date: 20060130
  Receipt Date: 20060110
  Transmission Date: 20060701
  Serious: Yes (Hospitalization)
  Sender: FDA-Public Use
  Company Number: CIO05020485

PATIENT
  Age: 2 Month
  Sex: Male
  Weight: 6.4 kg

DRUGS (1)
  1. VAPOSTEAM [Suspect]
     Indication: NASOPHARYNGITIS
     Dosage: 1 ONLY, TOPICAL
     Route: 061
     Dates: start: 20051227, end: 20051227

REACTIONS (3)
  - CONVULSION [None]
  - HEPATIC ENZYME INCREASED [None]
  - INCORRECT ROUTE OF DRUG ADMINISTRATION [None]
